FAERS Safety Report 24657958 (Version 1)
Quarter: 2024Q4

REPORT INFORMATION
  Report Type: Other
  Country: GB (occurrence: GB)
  Receive Date: 20241125
  Receipt Date: 20241125
  Transmission Date: 20250115
  Serious: Yes (Hospitalization)
  Sender: ANI
  Company Number: GB-ANIPHARMA-012897

PATIENT
  Age: 57 Year
  Sex: Female

DRUGS (4)
  1. CHOLESTYRAMINE [Suspect]
     Active Substance: CHOLESTYRAMINE
     Indication: Bile acid malabsorption
  2. LOPERAMIDE [Concomitant]
     Active Substance: LOPERAMIDE
     Indication: Bile acid malabsorption
  3. CODEINE [Concomitant]
     Active Substance: CODEINE
     Indication: Bile acid malabsorption
  4. COLESEVELAM [Concomitant]
     Active Substance: COLESEVELAM
     Indication: Bile acid malabsorption

REACTIONS (3)
  - Drug intolerance [Unknown]
  - Anal incontinence [Recovering/Resolving]
  - Nocturia [Recovering/Resolving]
